FAERS Safety Report 7790490-9 (Version None)
Quarter: 2011Q3

REPORT INFORMATION
  Report Type: 
  Country: None (occurrence: None)
  Receive Date: 20110930
  Receipt Date: 20110922
  Transmission Date: 20111222
  Serious: Yes (Hospitalization, Other)
  Sender: FDA-Public Use
  Company Number: PHEH2010US00473

PATIENT
  Sex: Female

DRUGS (34)
  1. DEMEROL [Concomitant]
     Dosage: 50 MG, UNK
  2. DEXAMETHASONE [Concomitant]
     Dosage: 120 MG, UNK
  3. DULCOLAX [Concomitant]
  4. AUGMENTIN '125' [Concomitant]
     Dosage: 500 MG, UNK
  5. AMBIEN [Concomitant]
     Dosage: 10 MG, UNK
  6. TEMAZEPAM [Concomitant]
  7. PHENERGAN HCL [Concomitant]
     Dosage: 12.5 MG, UNK
  8. XELODA [Concomitant]
     Dosage: 1000 MG, BID
     Route: 048
  9. CARISOPRODOL [Concomitant]
     Dosage: 350 MG, UNK
  10. MORPHINE SULFATE [Concomitant]
     Dosage: UNK
  11. ZOLADEX [Concomitant]
  12. TYLENOL-500 [Concomitant]
     Dosage: 650 MG, UNK
     Route: 048
  13. MOTRIN [Concomitant]
     Dosage: 600 MG, UNK
  14. HEPARIN [Concomitant]
  15. NALOXONE [Concomitant]
     Dosage: UNK
  16. TORADOL [Concomitant]
     Dosage: 30 MG, UNK
  17. COLACE [Concomitant]
     Dosage: ONE CAPSULE DAILY
     Route: 048
  18. COMPAZINE [Concomitant]
     Dosage: 5 MG, UNK
     Route: 048
  19. ZOMETA [Suspect]
     Dosage: UNK
  20. BISACODYL [Concomitant]
     Dosage: 10 MG, UNK
  21. SOMA [Concomitant]
     Dosage: 350 MG, UNK
     Route: 048
  22. CEFOXITIN [Concomitant]
     Dosage: 2 MG, UNK
  23. FLAGYL [Concomitant]
     Dosage: 500 MG, UNK
  24. ATIVAN [Concomitant]
     Dosage: 2 MG, UNK
  25. ZOFRAN [Concomitant]
     Dosage: 4 MG, UNK
  26. DOXYCYCLINE [Concomitant]
     Dosage: 100 MG, UNK
  27. VALIUM [Concomitant]
     Dosage: 5 MG, UNK
     Route: 048
  28. ANZEMET [Concomitant]
     Dosage: 100 MG, UNK
  29. TAMOXIFEN CITRATE [Concomitant]
  30. CEFTIZOXIME SODIUM [Concomitant]
  31. METRONIDAZOLE [Concomitant]
     Dosage: 500 MG, UNK
  32. LIDOCAINE [Concomitant]
  33. PERCOCET [Concomitant]
  34. OXYCONTIN [Concomitant]
     Dosage: 20 MG, UNK
     Route: 048

REACTIONS (38)
  - GENERAL PHYSICAL HEALTH DETERIORATION [None]
  - ENDOMETRIAL HYPERPLASIA [None]
  - POSTMENOPAUSAL HAEMORRHAGE [None]
  - PELVIC ABSCESS [None]
  - HAND FRACTURE [None]
  - INTERVERTEBRAL DISC DEGENERATION [None]
  - PAIN [None]
  - OSTEOLYSIS [None]
  - HEPATITIS C [None]
  - DEHYDRATION [None]
  - BREAST CANCER [None]
  - CHEST PAIN [None]
  - HYPOTENSION [None]
  - FALL [None]
  - LUNG INFILTRATION [None]
  - NEOPLASM MALIGNANT [None]
  - ANXIETY [None]
  - DECREASED INTEREST [None]
  - BACK PAIN [None]
  - BONE LESION [None]
  - LOBAR PNEUMONIA [None]
  - PLEURAL EFFUSION [None]
  - METASTASES TO BONE [None]
  - HYPONATRAEMIA [None]
  - THROMBOCYTOPENIA [None]
  - RIB FRACTURE [None]
  - RECTAL CANCER [None]
  - RASH [None]
  - PAIN IN EXTREMITY [None]
  - SEPSIS [None]
  - OSTEONECROSIS OF JAW [None]
  - UTERINE FIBROSIS [None]
  - INTERVERTEBRAL DISC PROTRUSION [None]
  - MUSCLE STRAIN [None]
  - LIGAMENT SPRAIN [None]
  - PERICARDIAL CYST [None]
  - METASTASES TO LIVER [None]
  - SINUSITIS [None]
